FAERS Safety Report 19853714 (Version 1)
Quarter: 2021Q3

REPORT INFORMATION
  Report Type: Spontaneous
  Country: GB (occurrence: GB)
  Receive Date: 20210919
  Receipt Date: 20210919
  Transmission Date: 20211014
  Serious: Yes (Other)
  Sender: FDA-Public Use
  Company Number: GB-BAXTER-2021BAX028925

PATIENT
  Age: 73 Year
  Sex: Female
  Weight: 65 kg

DRUGS (1)
  1. ONDANSETRON 2MG/ML SOLUTION FOR INJECTION [Suspect]
     Active Substance: ONDANSETRON
     Indication: ANAESTHESIA PROCEDURE
     Route: 042
     Dates: start: 20210511

REACTIONS (2)
  - Hypersensitivity [Recovered/Resolved]
  - Tryptase increased [Recovered/Resolved]

NARRATIVE: CASE EVENT DATE: 20210511
